FAERS Safety Report 5254293-1 (Version None)
Quarter: 2007Q1

REPORT INFORMATION
  Report Type: 
  Country: None (occurrence: None)
  Receive Date: 20070302
  Receipt Date: 20070223
  Transmission Date: 20070707
  Serious: Yes (Other)
  Sender: FDA-Public Use
  Company Number: GB-GLAXOSMITHKLINE-B0460326A

PATIENT
  Age: 29 Year
  Sex: Male
  Weight: 74.5 kg

DRUGS (1)
  1. ALBENDAZOLE [Suspect]
     Indication: DEHYDRATION
     Dosage: 400MG TWICE PER DAY
     Route: 048
     Dates: start: 20060822

REACTIONS (3)
  - ALANINE AMINOTRANSFERASE INCREASED [None]
  - ASPARTATE AMINOTRANSFERASE INCREASED [None]
  - HEPATOCELLULAR DAMAGE [None]
